FAERS Safety Report 11375682 (Version 3)
Quarter: 2015Q4

REPORT INFORMATION
  Report Type: Report from Study
  Country: US (occurrence: US)
  Receive Date: 20150813
  Receipt Date: 20151023
  Transmission Date: 20160304
  Serious: Yes (Hospitalization, Other)
  Sender: FDA-Public Use
  Company Number: US-GILEAD-2015-0167254

PATIENT
  Age: 65 Year
  Sex: Male

DRUGS (5)
  1. AMBRISENTAN [Suspect]
     Active Substance: AMBRISENTAN
     Indication: PULMONARY ARTERIAL HYPERTENSION
     Dosage: 10 MG, QD
     Route: 065
     Dates: start: 20141216
  2. AMBRISENTAN [Suspect]
     Active Substance: AMBRISENTAN
     Indication: SYSTEMIC SCLEROSIS
  3. REMODULIN [Concomitant]
     Active Substance: TREPROSTINIL
  4. TYVASO [Concomitant]
     Active Substance: TREPROSTINIL
  5. ADCIRCA [Concomitant]
     Active Substance: TADALAFIL

REACTIONS (5)
  - Infusion site pain [Unknown]
  - Impaired gastric emptying [Unknown]
  - Fatigue [Not Recovered/Not Resolved]
  - Dyspnoea [Unknown]
  - Diarrhoea [Not Recovered/Not Resolved]

NARRATIVE: CASE EVENT DATE: 20151002
